FAERS Safety Report 21298362 (Version 1)
Quarter: 2022Q3

REPORT INFORMATION
  Report Type: Spontaneous
  Country: US (occurrence: None)
  Receive Date: 20220902
  Receipt Date: 20220902
  Transmission Date: 20221026
  Serious: Yes (Other)
  Sender: FDA-Public Use
  Company Number: None

PATIENT
  Age: 71 Year
  Sex: Female
  Weight: 61.56 kg

DRUGS (1)
  1. AMANTADINE [Suspect]
     Active Substance: AMANTADINE
     Dosage: FREQUENCY : DAILY;?
     Route: 048
     Dates: start: 20220519, end: 20220519

REACTIONS (10)
  - Condition aggravated [None]
  - Abnormal behaviour [None]
  - Agitation [None]
  - Fatigue [None]
  - Aggression [None]
  - Sleep disorder [None]
  - Disorientation [None]
  - Dementia [None]
  - Dementia Alzheimer^s type [None]
  - Hallucination, visual [None]

NARRATIVE: CASE EVENT DATE: 20220519
